FAERS Safety Report 4773007-2 (Version None)
Quarter: 2005Q3

REPORT INFORMATION
  Report Type: 
  Country: None (occurrence: None)
  Receive Date: 20050919
  Receipt Date: 20050801
  Transmission Date: 20060218
  Serious: Yes (Hospitalization, Disabling)
  Sender: FDA-Public Use
  Company Number: 2005SE04431

PATIENT
  Age: 0 Day
  Sex: Male

DRUGS (3)
  1. BLOPRESS TABLETS 2 [Suspect]
     Indication: PREGNANCY INDUCED HYPERTENSION
     Route: 064
     Dates: start: 20050625, end: 20050725
  2. FLUITRAN [Suspect]
     Indication: PREGNANCY INDUCED HYPERTENSION
     Route: 064
     Dates: start: 20050622, end: 20050725
  3. ASPARA K [Suspect]
     Indication: PROPHYLAXIS
     Route: 064
     Dates: start: 20050622, end: 20050725

REACTIONS (16)
  - ATELECTASIS [None]
  - DEHYDRATION [None]
  - DRUG EXPOSURE DURING PREGNANCY [None]
  - FEEDING DISORDER NEONATAL [None]
  - HYPERPHOSPHATAEMIA [None]
  - HYPOGLYCAEMIA NEONATAL [None]
  - MECONIUM STAIN [None]
  - NEONATAL ASPHYXIA [None]
  - NEONATAL HYPONATRAEMIA [None]
  - OLIGOHYDRAMNIOS [None]
  - PERIPHERAL OEDEMA NEONATAL [None]
  - PERITONEAL DIALYSIS [None]
  - PULMONARY HYPOPLASIA [None]
  - RENAL FAILURE NEONATAL [None]
  - RENAL TUBULAR DISORDER [None]
  - SHOCK [None]
